FAERS Safety Report 7499703-4 (Version None)
Quarter: 2011Q2

REPORT INFORMATION
  Report Type: 
  Country: None (occurrence: None)
  Receive Date: 20110524
  Receipt Date: 20110517
  Transmission Date: 20111010
  Serious: Yes (Hospitalization)
  Sender: FDA-Public Use
  Company Number: CA-ROCHE-764891

PATIENT
  Sex: Male

DRUGS (8)
  1. AVALIDE [Concomitant]
  2. PREDNISONE [Concomitant]
  3. ACTONEL [Concomitant]
  4. LEFLUNOMIDE [Concomitant]
  5. TYLENOL W/ CODEINE NO. 3 [Concomitant]
     Dosage: PRN (AS NECESSARY)
  6. CELEXA [Concomitant]
  7. RANITIDINE [Concomitant]
  8. TOCILIZUMAB [Suspect]
     Indication: RHEUMATOID ARTHRITIS
     Dosage: FORM: INFUSION
     Route: 042
     Dates: start: 20101103

REACTIONS (1)
  - POST PROCEDURAL INFECTION [None]
